FAERS Safety Report 4538391-3 (Version None)
Quarter: 2004Q4

REPORT INFORMATION
  Report Type: 
  Country: None (occurrence: None)
  Receive Date: 20041223
  Receipt Date: 20041223
  Transmission Date: 20050328
  Serious: Yes (Hospitalization)
  Sender: FDA-Public Use
  Company Number: None

PATIENT
  Age: 60 Year
  Sex: Male
  Weight: 141.5223 kg

DRUGS (1)
  1. LISINOPRIL [Suspect]
     Dosage: 40 MG PO QD
     Route: 048

REACTIONS (2)
  - ANGIONEUROTIC OEDEMA [None]
  - DRUG HYPERSENSITIVITY [None]
